FAERS Safety Report 14232136 (Version 4)
Quarter: 2018Q1

REPORT INFORMATION
  Report Type: Spontaneous
  Country: US (occurrence: US)
  Receive Date: 20171128
  Receipt Date: 20180103
  Transmission Date: 20180508
  Serious: No
  Sender: FDA-Public Use
  Company Number: US-BIOGEN-2017BI00483326

PATIENT
  Sex: Female

DRUGS (1)
  1. AVONEX [Suspect]
     Active Substance: INTERFERON BETA-1A
     Indication: MULTIPLE SCLEROSIS
     Route: 030
     Dates: start: 19990825, end: 2017

REACTIONS (7)
  - Hepatic steatosis [Unknown]
  - Musculoskeletal disorder [Unknown]
  - Complication of device removal [Not Recovered/Not Resolved]
  - Injury associated with device [Unknown]
  - Nuclear magnetic resonance imaging abnormal [Unknown]
  - Laceration [Not Recovered/Not Resolved]
  - Muscular weakness [Not Recovered/Not Resolved]

NARRATIVE: CASE EVENT DATE: 2017
